FAERS Safety Report 10078787 (Version 2)
Quarter: 2014Q3

REPORT INFORMATION
  Report Type: Spontaneous
  Country: US (occurrence: US)
  Receive Date: 20140415
  Receipt Date: 20140703
  Transmission Date: 20150326
  Serious: Yes (Hospitalization, Other)
  Sender: FDA-Public Use
  Company Number: US-BAYER-2014-054865

PATIENT
  Age: 27 Year
  Sex: Female
  Weight: 58.5 kg

DRUGS (4)
  1. FLAGYL [Concomitant]
     Active Substance: METRONIDAZOLE\METRONIDAZOLE HYDROCHLORIDE
  2. MIRENA [Suspect]
     Active Substance: LEVONORGESTREL
     Indication: CONTRACEPTION
     Dosage: 20 MCG/24HR, CONT
     Route: 015
     Dates: start: 20120510
  3. ZOFRAN [Concomitant]
     Active Substance: ONDANSETRON HYDROCHLORIDE
  4. MOTRIN [Concomitant]
     Active Substance: IBUPROFEN

REACTIONS (7)
  - Device dislocation [None]
  - Pain [None]
  - Uterine perforation [None]
  - Device difficult to use [None]
  - Emotional distress [None]
  - Injury [None]
  - Device issue [None]

NARRATIVE: CASE EVENT DATE: 201303
